FAERS Safety Report 6152732-5 (Version None)
Quarter: 2009Q2

REPORT INFORMATION
  Report Type: 
  Country: None (occurrence: None)
  Receive Date: 20090413
  Receipt Date: 20090401
  Transmission Date: 20091009
  Serious: Yes (Disabling, Other)
  Sender: FDA-Public Use
  Company Number: US-ROCHE-539545

PATIENT
  Sex: Female
  Weight: 87.5 kg

DRUGS (2)
  1. PEG-INTERFERON A-2A (RO 25-8310) [Suspect]
     Indication: HEPATITIS C
     Dosage: FORM:PRFILLED SYRINGE (PFS)
     Route: 058
     Dates: start: 20070909, end: 20080810
  2. RIBAVIRIN [Suspect]
     Indication: HEPATITIS C
     Route: 065
     Dates: start: 20070909, end: 20080810

REACTIONS (6)
  - ASTHENIA [None]
  - DEHYDRATION [None]
  - GASTRITIS [None]
  - HYPERTHYROIDISM [None]
  - PARKINSON'S DISEASE [None]
  - WHITE BLOOD CELL COUNT DECREASED [None]
